FAERS Safety Report 25713428 (Version 3)
Quarter: 2025Q4

REPORT INFORMATION
  Report Type: Report from Study
  Country: CA (occurrence: None)
  Receive Date: 20250822
  Receipt Date: 20251107
  Transmission Date: 20260118
  Serious: No
  Sender: UCB
  Company Number: CA-UCBSA-2025037746

PATIENT
  Age: 50 Year

DRUGS (10)
  1. BIMEKIZUMAB [Suspect]
     Active Substance: BIMEKIZUMAB
     Indication: Ankylosing spondylitis
     Dosage: 160 MILLIGRAM, EV 4 WEEKS
  2. BIMEKIZUMAB [Suspect]
     Active Substance: BIMEKIZUMAB
     Dosage: 320 MILLIGRAM, EV 4 WEEKS
  3. ADVIL [Concomitant]
     Active Substance: IBUPROFEN
     Indication: Product used for unknown indication
  4. ESTRACE [Concomitant]
     Active Substance: ESTRADIOL
     Indication: Product used for unknown indication
     Dosage: UNK
  5. PROMETRIUM [Concomitant]
     Active Substance: PROGESTERONE
     Indication: Product used for unknown indication
     Dosage: UNK
  6. DEXILANT [Concomitant]
     Active Substance: DEXLANSOPRAZOLE
     Indication: Product used for unknown indication
     Dosage: UNK
  7. m vit d [Concomitant]
     Indication: Product used for unknown indication
     Dosage: UNK
  8. TRYPTOPHAN [Concomitant]
     Active Substance: TRYPTOPHAN
     Indication: Product used for unknown indication
     Dosage: UNK, PRN
  9. VALACYCLOVIR [Concomitant]
     Active Substance: VALACYCLOVIR HYDROCHLORIDE
     Indication: Product used for unknown indication
     Dosage: UNK
  10. BOTOX [Concomitant]
     Active Substance: ONABOTULINUMTOXINA
     Indication: Product used for unknown indication
     Dosage: UNK

REACTIONS (7)
  - BASDAI score increased [Recovering/Resolving]
  - Disease activity score [Recovering/Resolving]
  - Back pain [Recovering/Resolving]
  - Pain in extremity [Recovering/Resolving]
  - Viral infection [Recovering/Resolving]
  - Psoriasis [Recovering/Resolving]
  - Off label use [Unknown]
